FAERS Safety Report 13589658 (Version 2)
Quarter: 2020Q2

REPORT INFORMATION
  Report Type: Report from Study
  Country: None (occurrence: US)
  Receive Date: 20170530
  Receipt Date: 20200528
  Transmission Date: 20200713
  Serious: Yes (Other)
  Sender: FDA-Public Use
  Company Number: US-ABBVIE-17K-163-1990487-00

PATIENT
  Age: 49 Year
  Sex: Female

DRUGS (1)
  1. HUMIRA [Suspect]
     Active Substance: ADALIMUMAB
     Indication: RHEUMATOID ARTHRITIS
     Route: 058
     Dates: end: 2017

REACTIONS (7)
  - Intervertebral disc degeneration [Recovering/Resolving]
  - Meniscus injury [Not Recovered/Not Resolved]
  - Device issue [Unknown]
  - Injection site haemorrhage [Unknown]
  - Osteoarthritis [Not Recovered/Not Resolved]
  - Poor peripheral circulation [Unknown]
  - Neuropathic arthropathy [Not Recovered/Not Resolved]

NARRATIVE: CASE EVENT DATE: 20170321
